FAERS Safety Report 12381991 (Version 1)
Quarter: 2016Q2

REPORT INFORMATION
  Report Type: Spontaneous
  Country: US (occurrence: None)
  Receive Date: 20160517
  Receipt Date: 20160517
  Transmission Date: 20160815
  Serious: No
  Sender: FDA-Public Use
  Company Number: None

PATIENT
  Age: 56 Year

DRUGS (12)
  1. OMEPRAZOLE. [Concomitant]
     Active Substance: OMEPRAZOLE
  2. UREA. [Concomitant]
     Active Substance: UREA
  3. CLINDAMY/BEN [Concomitant]
  4. STELARA [Suspect]
     Active Substance: USTEKINUMAB
     Indication: PSORIASIS
     Dosage: 24 MG Q8W SQ
     Route: 058
     Dates: start: 20130729
  5. OTREXUP [Concomitant]
     Active Substance: METHOTREXATE
  6. POTASSIUM [Concomitant]
     Active Substance: POTASSIUM
  7. IBUPROFEN. [Concomitant]
     Active Substance: IBUPROFEN
  8. AMLODIPINE [Concomitant]
     Active Substance: AMLODIPINE BESYLATE
  9. METHOTREXATE [Concomitant]
     Active Substance: METHOTREXATE
  10. LEVOTHYROXIN [Concomitant]
     Active Substance: LEVOTHYROXINE
  11. FOLIC ACID. [Concomitant]
     Active Substance: FOLIC ACID
  12. DOVONEX [Concomitant]
     Active Substance: CALCIPOTRIENE

REACTIONS (1)
  - Drug ineffective [None]

NARRATIVE: CASE EVENT DATE: 201605
